FAERS Safety Report 11418133 (Version 1)
Quarter: 2015Q3

REPORT INFORMATION
  Report Type: Report from Study
  Country: US (occurrence: US)
  Receive Date: 20150825
  Receipt Date: 20150825
  Transmission Date: 20151125
  Serious: No
  Sender: FDA-Public Use
  Company Number: US-AMGEN-USASP2015085317

PATIENT
  Age: 58 Year
  Sex: Male

DRUGS (1)
  1. ENBREL [Suspect]
     Active Substance: ETANERCEPT
     Indication: RHEUMATOID ARTHRITIS
     Dosage: 50 MG, ONCE A WEEK
     Route: 065

REACTIONS (9)
  - Drug dose omission [Unknown]
  - Feeling hot [Unknown]
  - Cough [Unknown]
  - Local swelling [Unknown]
  - Chills [Unknown]
  - Pyrexia [Unknown]
  - Erythema [Unknown]
  - Joint swelling [Unknown]
  - Pain [Unknown]
